FAERS Safety Report 5160846-1 (Version None)
Quarter: 2006Q4

REPORT INFORMATION
  Report Type: 
  Country: None (occurrence: None)
  Receive Date: 20061130
  Receipt Date: 20061128
  Transmission Date: 20070319
  Serious: Yes (Hospitalization)
  Sender: FDA-Public Use
  Company Number: JP-SP-2006-03278

PATIENT
  Age: 82 Year
  Sex: Male

DRUGS (3)
  1. IMMUCYST [Suspect]
     Indication: BLADDER CANCER
     Route: 043
     Dates: end: 20061115
  2. IMMUCYST [Suspect]
     Route: 043
     Dates: end: 20061115
  3. INFLUENZA VACCINE [Concomitant]

REACTIONS (3)
  - BOVINE TUBERCULOSIS [None]
  - INCORRECT DRUG DOSAGE FORM ADMINISTERED [None]
  - PYREXIA [None]
